FAERS Safety Report 8201400-4 (Version None)
Quarter: 2012Q1

REPORT INFORMATION
  Report Type: 
  Country: None (occurrence: None)
  Receive Date: 20120308
  Receipt Date: 20120229
  Transmission Date: 20120608
  Serious: Yes (Disabling, Other)
  Sender: FDA-Public Use
  Company Number: AUR-APL-2012-01206

PATIENT
  Age: 56 Year
  Sex: Female
  Weight: 78 kg

DRUGS (6)
  1. ASPIRIN [Concomitant]
  2. METFORMIN [Concomitant]
  3. PIOGLITAZONE [Concomitant]
  4. SIMVASTATIN [Suspect]
     Indication: PROPHYLAXIS
     Dosage: 40 MG (40 MG,1 IN 1 D),ORAL
     Route: 048
     Dates: start: 20110701, end: 20120130
  5. LISINOPRIL [Concomitant]
  6. GLICLAZIDE [Concomitant]

REACTIONS (3)
  - MUSCULAR WEAKNESS [None]
  - MYALGIA [None]
  - MYOSITIS [None]
